FAERS Safety Report 9408614 (Version 6)
Quarter: 2014Q2

REPORT INFORMATION
  Report Type: Spontaneous
  Country: US (occurrence: None)
  Receive Date: 20130716
  Receipt Date: 20140408
  Transmission Date: 20141212
  Serious: Yes (Other)
  Sender: FDA-Public Use
  Company Number: JPI-P-033408

PATIENT
  Age: 39 Year
  Sex: Male
  Weight: 88.6 kg

DRUGS (11)
  1. XYREM [Suspect]
     Indication: INSOMNIA
     Dosage: 9 GM (4.5 GM, 2 IN 1 D)
     Route: 048
     Dates: start: 20070214
  2. XYREM [Suspect]
     Dosage: 9 GM (4.5 GM, 2 IN 1 D)
     Route: 048
     Dates: start: 20070214
  3. DEXEDRINE (DEXTROAMPHETAMINE SULFATE) [Concomitant]
  4. PREGABALIN (PREGABALIN) [Concomitant]
  5. ALPRAZOLAM (ALPRAZOLAM) [Concomitant]
  6. SELEGILINE HYDROCHLORIDE (SELEGILINE HYDROCHLORIDE) [Concomitant]
  7. NAMENDA (MEMANTINE HYDROCHLORIDE) [Concomitant]
  8. DOSTINEX(CABERGOLINE) [Concomitant]
  9. AMBIEN(ZOLPIDEM TARTRATE) [Concomitant]
  10. DEXTROAMPHETAMINE SULFATE (DEXTROAMPHETAMINE SULFATE) SOLUTION [Concomitant]
  11. ACETAMINOPHEN W/HYDROCODONE BITARTRATE (ACETAMINOPHEN W/NYDROCODONE BITARTRATE) [Concomitant]

REACTIONS (17)
  - Decreased appetite [None]
  - Incorrect dose administered [None]
  - Umbilical hernia [None]
  - Back pain [None]
  - Gait disturbance [None]
  - Inguinal hernia [None]
  - Intervertebral disc protrusion [None]
  - Foot deformity [None]
  - Feeling hot [None]
  - Skin discolouration [None]
  - Gait disturbance [None]
  - Pain [None]
  - Intentional product misuse [None]
  - Anorexia nervosa [None]
  - Compulsive hoarding [None]
  - Scar [None]
  - Off label use [None]
